FAERS Safety Report 13998933 (Version 4)
Quarter: 2019Q1

REPORT INFORMATION
  Report Type: Spontaneous
  Country: AU (occurrence: AU)
  Receive Date: 20170921
  Receipt Date: 20190211
  Transmission Date: 20190417
  Serious: Yes (Hospitalization, Other)
  Sender: FDA-Public Use
  Company Number: AU-BAYER-2017-174731

PATIENT
  Age: 57 Year
  Sex: Male

DRUGS (10)
  1. NEXAVAR [Suspect]
     Active Substance: SORAFENIB
     Indication: HEPATOCELLULAR CARCINOMA
     Dosage: 200 MG DAILY
  2. NEXAVAR [Suspect]
     Active Substance: SORAFENIB
     Indication: HEPATOCELLULAR CARCINOMA
     Dosage: 400 MG, BID
  3. STIVARGA [Suspect]
     Active Substance: REGORAFENIB
     Indication: HEPATOCELLULAR CARCINOMA
     Dosage: 120 MG/DAY
     Dates: start: 201807, end: 2018
  4. STIVARGA [Suspect]
     Active Substance: REGORAFENIB
     Indication: HEPATOCELLULAR CARCINOMA
     Dosage: 80 MG/DAY
     Dates: start: 201807, end: 201807
  5. NEXAVAR [Suspect]
     Active Substance: SORAFENIB
     Indication: HEPATOCELLULAR CARCINOMA
     Dosage: 400 MG DAILY
  6. STIVARGA [Suspect]
     Active Substance: REGORAFENIB
     Indication: HEPATOCELLULAR CARCINOMA
     Dosage: 120 MG/DAY
     Dates: start: 201806, end: 2018
  7. STIVARGA [Suspect]
     Active Substance: REGORAFENIB
     Indication: HEPATOCELLULAR CARCINOMA
     Dosage: 160 MG/DAY
     Dates: start: 201807, end: 201807
  8. NEXAVAR [Suspect]
     Active Substance: SORAFENIB
     Indication: HEPATOCELLULAR CARCINOMA
     Dosage: 400 MG, BID
     Dates: start: 201707
  9. STIVARGA [Suspect]
     Active Substance: REGORAFENIB
     Indication: HEPATOCELLULAR CARCINOMA
     Dosage: 80 MG DAILY FOR 3 WEEKS, WHICH WAS FOLLOWED BY ONE WEEK OFF THERAPY
     Dates: start: 201805, end: 2018
  10. STIVARGA [Suspect]
     Active Substance: REGORAFENIB
     Indication: HEPATOCELLULAR CARCINOMA
     Dosage: 80 MG/DAY
     Dates: start: 201808

REACTIONS (24)
  - Thrombocytopenia [Recovered/Resolved]
  - Drug ineffective [None]
  - Blood pressure increased [None]
  - Hepatocellular carcinoma [Recovering/Resolving]
  - Alpha 1 foetoprotein increased [Recovering/Resolving]
  - Diarrhoea [None]
  - Metastases to liver [None]
  - Metastases to peritoneum [None]
  - Limb discomfort [None]
  - Fatigue [Recovering/Resolving]
  - Biliary tract infection [None]
  - Palmar-plantar erythrodysaesthesia syndrome [Recovered/Resolved]
  - Nausea [None]
  - Bile duct stone [None]
  - Lethargy [None]
  - Pain of skin [None]
  - Skin reaction [None]
  - Fatigue [Recovering/Resolving]
  - Metastases to lung [None]
  - Bile duct obstruction [None]
  - Lower respiratory tract infection [Recovered/Resolved]
  - Rash [None]
  - Hypertension [None]
  - Pain in extremity [None]

NARRATIVE: CASE EVENT DATE: 2017
